FAERS Safety Report 8548637 (Version 3)
Quarter: 2013Q1

REPORT INFORMATION
  Report Type: Spontaneous
  Country: KR (occurrence: None)
  Receive Date: 20120427
  Receipt Date: 20130129
  Transmission Date: 20140127
  Serious: Yes (Hospitalization)
  Sender: FDA-Public Use
  Company Number: JP-2012-14969

PATIENT
  Age: 59 Year
  Sex: Male

DRUGS (5)
  1. PLETAL [Suspect]
     Dates: start: 20111117
  2. JANUMET [Concomitant]
  3. GLUFAST (MITIGLINIDE CALCIUM) [Concomitant]
  4. LIPINON (ATORVASTATIN) [Concomitant]
  5. GASLON-N 9IRSOGLADINE MALEATE) [Concomitant]

REACTIONS (1)
  - HEMIPARESIS [None]
